FAERS Safety Report 4906993-8 (Version None)
Quarter: 2006Q1

REPORT INFORMATION
  Report Type: 
  Country: None (occurrence: None)
  Receive Date: 20060207
  Receipt Date: 20060126
  Transmission Date: 20060701
  Serious: Yes (Hospitalization)
  Sender: FDA-Public Use
  Company Number: 600170412/AK04837AE

PATIENT
  Age: 27 Year
  Sex: Female

DRUGS (1)
  1. PAREMYD, 1%/0.25%, AKORN [Suspect]
     Indication: MYDRIASIS
     Dates: start: 20060125, end: 20060125

REACTIONS (1)
  - CONVULSION [None]
